FAERS Safety Report 15232830 (Version 1)
Quarter: 2018Q3

REPORT INFORMATION
  Report Type: Report from Study
  Country: US (occurrence: US)
  Receive Date: 20180802
  Receipt Date: 20180802
  Transmission Date: 20181010
  Serious: Yes (Other)
  Sender: FDA-Public Use
  Company Number: US-ROCHE-2163039

PATIENT
  Sex: Male

DRUGS (3)
  1. IMATINIB MESILATE [Suspect]
     Active Substance: IMATINIB MESYLATE
     Indication: PULMONARY VEIN STENOSIS
     Dosage: TABLETS (100 MG) WERE INITIALLY DISSOLVED IN 50 ML OF WATER OR APPLE JUICE
     Route: 048
  2. BEVACIZUMAB. [Suspect]
     Active Substance: BEVACIZUMAB
     Indication: PULMONARY VEIN STENOSIS
     Dosage: INITIALLY OVER A MINIMUM OF 90 MINUTES
     Route: 042
  3. BEVACIZUMAB. [Suspect]
     Active Substance: BEVACIZUMAB
     Dosage: THE SECOND AND REMAINING DOSES WERE GIVEN OVER A MINIMUM OF 60 AND 30 MINUTES, RESPECTIVELY, IF NO A
     Route: 042

REACTIONS (4)
  - Bone marrow failure [Unknown]
  - Infection [Unknown]
  - Gastrointestinal toxicity [Unknown]
  - Hepatotoxicity [Unknown]
